FAERS Safety Report 25150378 (Version 1)
Quarter: 2025Q2

REPORT INFORMATION
  Report Type: Spontaneous
  Country: US (occurrence: US)
  Receive Date: 20250402
  Receipt Date: 20250402
  Transmission Date: 20250717
  Serious: No
  Sender: VERTEX
  Company Number: US-VERTEX PHARMACEUTICALS-2023-006661

PATIENT
  Sex: Male
  Weight: 75 kg

DRUGS (4)
  1. TRIKAFTA [Suspect]
     Active Substance: ELEXACAFTOR\IVACAFTOR\TEZACAFTOR
     Indication: Cystic fibrosis
     Dosage: 2 ORANGE TABLETS IN THE MORNING AND 1 BLUE TABLET IN THE EVENING
     Route: 048
     Dates: start: 20200202
  2. ALBUTEROL SULFATE [Concomitant]
     Active Substance: ALBUTEROL SULFATE
  3. OMEPRAZOLE [Concomitant]
     Active Substance: OMEPRAZOLE
  4. AZITHROMYCIN [Concomitant]
     Active Substance: AZITHROMYCIN

REACTIONS (4)
  - Fatigue [Not Recovered/Not Resolved]
  - Alopecia [Not Recovered/Not Resolved]
  - Depression [Not Recovered/Not Resolved]
  - Impaired quality of life [Not Recovered/Not Resolved]

NARRATIVE: CASE EVENT DATE: 20200101
